FAERS Safety Report 5722220-6 (Version None)
Quarter: 2008Q2

REPORT INFORMATION
  Report Type: 
  Country: None (occurrence: None)
  Receive Date: 20080429
  Receipt Date: 20080417
  Transmission Date: 20081010
  Serious: Yes (Other)
  Sender: FDA-Public Use
  Company Number: CA-ELI_LILLY_AND_COMPANY-CA200804004848

PATIENT
  Sex: Female

DRUGS (11)
  1. FORTEO [Suspect]
     Indication: OSTEOPOROSIS
     Dosage: 20 UG, DAILY (1/D)
     Route: 058
     Dates: start: 20071026
  2. LEVOTHYROXINE SODIUM [Concomitant]
  3. PANTOLOC                           /01263201/ [Concomitant]
  4. PROPRANOLOL [Concomitant]
  5. VITAMIN B-12 [Concomitant]
     Dosage: UNK, MONTHLY (1/M)
  6. HYDROMORPHONE HCL [Concomitant]
  7. FIORINAL [Concomitant]
  8. LORAZEPAM [Concomitant]
  9. VITAMIN D [Concomitant]
  10. APO-HYDRO [Concomitant]
     Dates: start: 20080326
  11. GRAVOL TAB [Concomitant]

REACTIONS (4)
  - MASTECTOMY [None]
  - MUSCULOSKELETAL CHEST PAIN [None]
  - PAIN [None]
  - PROTEIN TOTAL DECREASED [None]
